FAERS Safety Report 16854610 (Version 1)
Quarter: 2019Q3

REPORT INFORMATION
  Report Type: Spontaneous
  Country: US (occurrence: US)
  Receive Date: 20190926
  Receipt Date: 20190926
  Transmission Date: 20191005
  Serious: No
  Sender: FDA-Public Use
  Company Number: US-JNJFOC-20190933317

PATIENT
  Sex: Male
  Weight: 83.99 kg

DRUGS (1)
  1. ZYRTEC [Suspect]
     Active Substance: CETIRIZINE HYDROCHLORIDE
     Indication: HYPERSENSITIVITY
     Dosage: DEPENDS ON THE ALLERGY; NOT EVERYDAY?LAST DATE USED: 20-SEP-2019
     Route: 048

REACTIONS (1)
  - Overdose [Unknown]
